FAERS Safety Report 8262972-7 (Version None)
Quarter: 2012Q1

REPORT INFORMATION
  Report Type: 
  Country: None (occurrence: None)
  Receive Date: 20120327
  Receipt Date: 20081205
  Transmission Date: 20120608
  Serious: Yes (Hospitalization, Other)
  Sender: FDA-Public Use
  Company Number: PHEH2008US10858

PATIENT
  Sex: Male
  Weight: 96.1 kg

DRUGS (7)
  1. HYZAAR [Concomitant]
  2. PROTONIX [Concomitant]
  3. NORVASC [Concomitant]
  4. POTASSIUM CHLORIDE [Concomitant]
  5. GLEEVEC [Suspect]
     Indication: GASTROINTESTINAL STROMAL TUMOUR
     Dosage: 400 MG, QD, ORAL
     Route: 048
     Dates: start: 20080501, end: 20080725
  6. GLEEVEC [Suspect]
     Indication: GASTROINTESTINAL STROMAL TUMOUR
     Dosage: 400 MG, QD, ORAL
     Route: 048
     Dates: start: 20080726
  7. GLEEVEC [Suspect]
     Indication: GASTROINTESTINAL STROMAL TUMOUR
     Dosage: 400 MG, QD, ORAL
     Route: 048
     Dates: end: 20080820

REACTIONS (7)
  - ANAEMIA [None]
  - DYSGEUSIA [None]
  - WEIGHT DECREASED [None]
  - DECREASED APPETITE [None]
  - ABDOMINAL DISCOMFORT [None]
  - DIZZINESS [None]
  - DISEASE PROGRESSION [None]
